FAERS Safety Report 7766315-4 (Version None)
Quarter: 2011Q3

REPORT INFORMATION
  Report Type: 
  Country: None (occurrence: None)
  Receive Date: 20110922
  Receipt Date: 20110913
  Transmission Date: 20111222
  Serious: No
  Sender: FDA-Public Use
  Company Number: US-BIOGENIDEC-2010BI022687

PATIENT
  Sex: Male

DRUGS (1)
  1. TYSABRI [Suspect]
     Indication: MULTIPLE SCLEROSIS
     Route: 042
     Dates: start: 20090608

REACTIONS (9)
  - OPTIC NEURITIS [None]
  - SPINAL DISORDER [None]
  - PRURITUS [None]
  - BACK PAIN [None]
  - BONE PAIN [None]
  - FALL [None]
  - HYPOAESTHESIA [None]
  - DIZZINESS [None]
  - DRY SKIN [None]
